FAERS Safety Report 11645390 (Version 3)
Quarter: 2016Q1

REPORT INFORMATION
  Report Type: Report from Study
  Country: BE (occurrence: BE)
  Receive Date: 20151020
  Receipt Date: 20160115
  Transmission Date: 20160525
  Serious: Yes (Death, Hospitalization)
  Sender: FDA-Public Use
  Company Number: BE-ABBVIE-15P-013-1482990-00

PATIENT
  Age: 71 Year

DRUGS (7)
  1. LYSANXIA [Concomitant]
     Active Substance: PRAZEPAM
     Indication: PRODUCT USED FOR UNKNOWN INDICATION
     Route: 065
  2. DUODOPA [Suspect]
     Active Substance: CARBIDOPA\LEVODOPA
     Dosage: AM DOSE=5ML, CD=2.5(AM)/3.2(NM) ML/H DURING 16HRS; ED=2ML
     Route: 050
     Dates: start: 20090114, end: 20100105
  3. DUODOPA [Suspect]
     Active Substance: CARBIDOPA\LEVODOPA
     Dosage: AM DOSE=0.5ML; CD=2.1ML/H DURING 16HRS,; ED=1.1ML; ND=2.1ML/H DURING 8HRS
     Route: 050
     Dates: start: 20150615, end: 20151014
  4. PROLOPA HBS [Concomitant]
     Active Substance: BENSERAZIDE\LEVODOPA
     Indication: PARKINSON^S DISEASE
     Dosage: FORM STRENGTH:100MG/25MG
     Route: 065
  5. DUODOPA [Suspect]
     Active Substance: CARBIDOPA\LEVODOPA
     Dosage: DOSAGE CONTINUOUSLY MONITORED AND ADJUSTED
     Route: 050
     Dates: start: 20100105, end: 20150615
  6. DUODOPA [Suspect]
     Active Substance: CARBIDOPA\LEVODOPA
     Indication: PARKINSON^S DISEASE
     Route: 050
     Dates: start: 20071116, end: 20090114
  7. DUODOPA [Suspect]
     Active Substance: CARBIDOPA\LEVODOPA
     Dosage: AM DOSE=0.5ML, CD=2.1ML/H FOR 16HRS, ED=1.1ML; ND=2.1ML/H DURING 8HRS
     Route: 050
     Dates: start: 20151014

REACTIONS (3)
  - General physical health deterioration [Fatal]
  - Joint dislocation [Unknown]
  - Death [Fatal]

NARRATIVE: CASE EVENT DATE: 20160112
